FAERS Safety Report 8063710-3 (Version None)
Quarter: 2012Q1

REPORT INFORMATION
  Report Type: 
  Country: None (occurrence: None)
  Receive Date: 20120123
  Receipt Date: 20120116
  Transmission Date: 20120608
  Serious: Yes (Death)
  Sender: FDA-Public Use
  Company Number: GB-ABBOTT-11P-167-0855903-00

PATIENT
  Sex: Male
  Weight: 196 kg

DRUGS (2)
  1. HYDROXYCHLOROQUINE SULFATE [Concomitant]
     Indication: PRODUCT USED FOR UNKNOWN INDICATION
     Dates: start: 20070423
  2. HUMIRA [Suspect]
     Indication: RHEUMATOID ARTHRITIS
     Route: 058
     Dates: start: 20041024, end: 20050421

REACTIONS (5)
  - INFECTIOUS PERITONITIS [None]
  - APPENDICITIS [None]
  - DEATH [None]
  - FAECALOMA [None]
  - LARGE INTESTINE PERFORATION [None]
